FAERS Safety Report 5424073-2 (Version None)
Quarter: 2007Q3

REPORT INFORMATION
  Report Type: 
  Country: None (occurrence: None)
  Receive Date: 20070823
  Receipt Date: 20070813
  Transmission Date: 20080115
  Serious: Yes (Other)
  Sender: FDA-Public Use
  Company Number: US-SHR-US-2007-030128

PATIENT
  Age: 42 Year
  Sex: Female

DRUGS (3)
  1. BETASERON [Suspect]
     Indication: RELAPSING-REMITTING MULTIPLE SCLEROSIS
     Dosage: 8 MIU, EVERY 2D
     Route: 058
     Dates: start: 20060809, end: 20070713
  2. BETASERON [Suspect]
     Dosage: 8 MIU, EVERY 2D
     Route: 058
     Dates: start: 20070813
  3. TYLENOL ^JOHNSON + JOHNSON^ [Concomitant]

REACTIONS (8)
  - ALVEOLAR OSTEITIS [None]
  - EYE PAIN [None]
  - HERPES ZOSTER [None]
  - IMPAIRED HEALING [None]
  - ORAL INFECTION [None]
  - PAIN IN JAW [None]
  - TOOTH ABSCESS [None]
  - TOOTH FRACTURE [None]
